FAERS Safety Report 5579353-7 (Version None)
Quarter: 2008Q1

REPORT INFORMATION
  Report Type: 
  Country: None (occurrence: None)
  Receive Date: 20080102
  Receipt Date: 20071231
  Transmission Date: 20080703
  Serious: Yes (Hospitalization, Congenital Anomaly)
  Sender: FDA-Public Use
  Company Number: FR-JNJFOC-20071206347

PATIENT
  Sex: Male
  Weight: 2.85 kg

DRUGS (2)
  1. HALDOL [Suspect]
     Indication: DRUG EXPOSURE DURING PREGNANCY
  2. ABILIFY [Suspect]
     Indication: DRUG EXPOSURE DURING PREGNANCY

REACTIONS (10)
  - CARDIAC MURMUR [None]
  - CARDIOMEGALY [None]
  - COLOBOMA [None]
  - CONGENITAL MULTIPLEX ARTHROGRYPOSIS [None]
  - DRUG EXPOSURE DURING PREGNANCY [None]
  - KIDNEY MALFORMATION [None]
  - MACROGLOSSIA [None]
  - NECK DEFORMITY [None]
  - PULMONARY HYPERTENSION [None]
  - RESPIRATORY DISTRESS [None]
